FAERS Safety Report 8096843-6 (Version None)
Quarter: 2012Q1

REPORT INFORMATION
  Report Type: 
  Country: None (occurrence: None)
  Receive Date: 20120129
  Receipt Date: 20111220
  Transmission Date: 20120608
  Serious: Yes (Hospitalization)
  Sender: FDA-Public Use
  Company Number: US-ABBOTT-11P-163-0880660-00

PATIENT
  Sex: Female

DRUGS (2)
  1. UNKNOWN CREAM [Concomitant]
     Indication: STASIS DERMATITIS
     Dates: start: 20111001
  2. HUMIRA [Suspect]
     Indication: PSORIASIS
     Route: 058
     Dates: start: 20110301

REACTIONS (1)
  - CELLULITIS [None]
